FAERS Safety Report 16910249 (Version 1)
Quarter: 2019Q4

REPORT INFORMATION
  Report Type: Spontaneous
  Country: US (occurrence: US)
  Receive Date: 20191011
  Receipt Date: 20191011
  Transmission Date: 20200122
  Serious: No
  Sender: FDA-Public Use
  Company Number: US-BAUSCH-BL-2019-055805

PATIENT
  Sex: Female

DRUGS (1)
  1. EFUDEX [Suspect]
     Active Substance: FLUOROURACIL
     Indication: PRODUCT USED FOR UNKNOWN INDICATION
     Dosage: STARTED USING EFUDEX ABOUT 5 DAYS AGO
     Route: 061
     Dates: start: 201909

REACTIONS (1)
  - Lip blister [Unknown]

NARRATIVE: CASE EVENT DATE: 201909
